FAERS Safety Report 13935701 (Version 2)
Quarter: 2017Q3

REPORT INFORMATION
  Report Type: Spontaneous
  Country: NL (occurrence: NL)
  Receive Date: 20170905
  Receipt Date: 20170927
  Transmission Date: 20171127
  Serious: Yes (Death, Other)
  Sender: FDA-Public Use
  Company Number: NL-TOLMAR, INC.-2017NL011636

PATIENT
  Sex: Male

DRUGS (3)
  1. ELIGARD [Suspect]
     Active Substance: LEUPROLIDE ACETATE
     Indication: PROSTATE CANCER
     Dosage: 45 MG, 1 X 6 MONTHS
     Route: 058
     Dates: start: 20151014
  2. ELIGARD [Suspect]
     Active Substance: LEUPROLIDE ACETATE
     Dosage: 45 MG, 1 X 6 MONTHS
     Route: 058
     Dates: start: 20170403
  3. ELIGARD [Suspect]
     Active Substance: LEUPROLIDE ACETATE
     Dosage: 45 MG, 1 X 6 MONTHS
     Route: 058
     Dates: start: 20161003

REACTIONS (1)
  - Prostate cancer [Fatal]
